FAERS Safety Report 10408226 (Version 1)
Quarter: 2014Q3

REPORT INFORMATION
  Report Type: Spontaneous
  Country: CA (occurrence: CA)
  Receive Date: 20140826
  Receipt Date: 20140826
  Transmission Date: 20150326
  Serious: Yes (Death, Hospitalization)
  Sender: FDA-Public Use
  Company Number: CA-AMGEN-CANSP2014063299

PATIENT
  Age: 8 Month
  Sex: Male

DRUGS (15)
  1. HYDROCHLOROTHIAZIDE W/SPIRONOLACTONE [Concomitant]
     Dosage: TABLET
     Route: 065
  2. METOLAZONE. [Concomitant]
     Active Substance: METOLAZONE
     Dosage: 0.6 MG, BID
     Route: 048
  3. CLOBAZAM [Concomitant]
     Active Substance: CLOBAZAM
     Dosage: 2.5 MG, BID
     Route: 065
  4. OMEPRAZOL                          /00661201/ [Concomitant]
     Active Substance: OMEPRAZOLE
     Dosage: 12 MG, QD
     Route: 065
  5. ARANESP [Suspect]
     Active Substance: DARBEPOETIN ALFA
     Indication: PRODUCT USED FOR UNKNOWN INDICATION
     Dosage: 10 MUG, 1 EVERY 5 DAYS (29 DAYS)
     Route: 058
  6. FUROSEMIDE. [Concomitant]
     Active Substance: FUROSEMIDE
     Dosage: 26 MG, TID
     Route: 065
  7. LEVETIRACETAM. [Concomitant]
     Active Substance: LEVETIRACETAM
     Dosage: 100 MG TABLET, BID
     Route: 065
  8. TOPIRAMATE. [Concomitant]
     Active Substance: TOPIRAMATE
     Dosage: 37.5 MG, BID
     Route: 065
  9. SODIUM CHLORIDE. [Concomitant]
     Active Substance: SODIUM CHLORIDE
     Dosage: UNK, 4 EVERY 1 DAY(S)
     Route: 065
  10. TACROLIMUS. [Concomitant]
     Active Substance: TACROLIMUS
     Dosage: CAPSULE
     Route: 048
  11. CALCITROL /00508501/ [Suspect]
     Active Substance: CALCIUM CARBONATE\ERGOCALCIFEROL\RETINOL
     Indication: PRODUCT USED FOR UNKNOWN INDICATION
     Dosage: 0.1 MUG, UNK
     Route: 065
  12. CELLCEPT [Suspect]
     Active Substance: MYCOPHENOLATE MOFETIL\MYCOPHENOLATE MOFETIL HYDROCHLORIDE
     Indication: PRODUCT USED FOR UNKNOWN INDICATION
     Dosage: 300 MG, BID
     Route: 048
  13. DOMPERIDONE [Concomitant]
     Active Substance: DOMPERIDONE
     Dosage: 3.5 MG TABLET, TID
     Route: 048
  14. ENALAPRIL MALEATE. [Concomitant]
     Active Substance: ENALAPRIL MALEATE
     Dosage: 10.75 MG, Q8H
     Route: 048
  15. ETHACRYNIC ACID [Concomitant]
     Active Substance: ETHACRYNIC ACID
     Dosage: 10 MG IV NOS, BID

REACTIONS (19)
  - Aspiration [Fatal]
  - Developmental delay [Fatal]
  - No therapeutic response [Fatal]
  - Staphylococcal infection [Fatal]
  - Pyrexia [Fatal]
  - Aplasia pure red cell [Fatal]
  - Oxygen supplementation [Fatal]
  - Transplant rejection [Fatal]
  - Enterococcal infection [Fatal]
  - Respiratory distress [Fatal]
  - Thrombosis [Fatal]
  - Packed red blood cell transfusion [Fatal]
  - Haematocrit decreased [Fatal]
  - Device related infection [Fatal]
  - Staphylococcus test positive [Fatal]
  - Continuous positive airway pressure [Fatal]
  - Haemoglobin decreased [Fatal]
  - Wheezing [Fatal]
  - Convulsion [Fatal]
